FAERS Safety Report 5407331-7 (Version None)
Quarter: 2007Q3

REPORT INFORMATION
  Report Type: 
  Country: None (occurrence: None)
  Receive Date: 20070807
  Receipt Date: 20070727
  Transmission Date: 20080115
  Serious: Yes (Other)
  Sender: FDA-Public Use
  Company Number: US-ROCHE-509137

PATIENT
  Age: 64 Year
  Sex: Male

DRUGS (13)
  1. CELLCEPT [Suspect]
     Dosage: PATIENT TOOK 2 1/2 TABLETS IN THE MORNING AND 2 1/2 TABLETS IN THE EVENING.
     Route: 048
     Dates: start: 20020101, end: 20061101
  2. PROGRAF [Concomitant]
  3. PREDNISONE TAB [Concomitant]
     Dosage: PATIENT TOOK 10 MG EVERY OTHER DAY.
  4. CATAPRES-TTS-1 [Concomitant]
     Dosage: PATIENT APPLIED A CATAPRES PATCH WEEKLY.
  5. HYDRALAZINE HCL [Concomitant]
  6. TOPROL-XL [Concomitant]
  7. NORVASC [Concomitant]
  8. UNSPECIFIED DRUG [Concomitant]
     Dosage: PATIENT TOOK KIPHOSN 1 TABLET 3 TIMES A DAY.
  9. MAGNESIUM OXIDE [Concomitant]
  10. CALCIUM CHLORIDE [Concomitant]
  11. MULTIVITAMIN NOS [Concomitant]
  12. NEXIUM [Concomitant]
  13. ZOCOR [Concomitant]

REACTIONS (3)
  - COELIAC DISEASE [None]
  - COLON NEOPLASM [None]
  - LYMPHOMA [None]
